FAERS Safety Report 4312048-6 (Version None)
Quarter: 2004Q1

REPORT INFORMATION
  Report Type: 
  Country: None (occurrence: None)
  Receive Date: 20040303
  Receipt Date: 20040224
  Transmission Date: 20041129
  Serious: Yes (Life-Threatening)
  Sender: FDA-Public Use
  Company Number: 2004201143JP

PATIENT

DRUGS (2)
  1. HALCION [Suspect]
     Dosage: 30 DF, SINGLE, ORAL
     Route: 048
  2. SILECE (FLUNITRAZEPAM) [Suspect]
     Dosage: 30 DF, SINGLE, ORAL
     Route: 048

REACTIONS (3)
  - COMA [None]
  - MULTIPLE DRUG OVERDOSE [None]
  - SUICIDE ATTEMPT [None]
